FAERS Safety Report 6316529-5 (Version None)
Quarter: 2009Q3

REPORT INFORMATION
  Report Type: 
  Country: None (occurrence: None)
  Receive Date: 20090820
  Receipt Date: 20090813
  Transmission Date: 20100115
  Serious: Yes (Other)
  Sender: FDA-Public Use
  Company Number: CN-WATSON-2009-06586

PATIENT
  Age: 54 Year
  Sex: Female

DRUGS (5)
  1. PREDNISONE (WATSON LABORATORIES) [Suspect]
     Indication: CONNECTIVE TISSUE DISORDER
     Dosage: UNK
     Route: 065
  2. CYCLOSPORINE [Suspect]
     Indication: CONNECTIVE TISSUE DISORDER
     Dosage: UNK
     Route: 065
  3. METHYLPREDNISOLONE ACETATE [Suspect]
     Indication: CONNECTIVE TISSUE DISORDER
     Route: 065
  4. VINCRISTINE [Suspect]
     Indication: CONNECTIVE TISSUE DISORDER
  5. IMMUNE GLOBULIN INTRAVENOUS (HUMAN) [Suspect]
     Indication: CONNECTIVE TISSUE DISORDER
     Route: 042

REACTIONS (3)
  - HYPERTENSION [None]
  - LIVER INJURY [None]
  - OSTEONECROSIS [None]
